FAERS Safety Report 4503933-0 (Version None)
Quarter: 2004Q3

REPORT INFORMATION
  Report Type: 
  Country: None (occurrence: None)
  Receive Date: 20040928
  Receipt Date: 20040617
  Transmission Date: 20050211
  Serious: No
  Sender: FDA-Public Use
  Company Number: 04P-163-0264117-00

PATIENT
  Age: 54 Year
  Sex: Male

DRUGS (5)
  1. HUMIRA [Suspect]
     Indication: RHEUMATOID ARTHRITIS
     Dosage: 40 MG 1 IN 3 WK SUBCUTANEOUS
     Route: 058
     Dates: start: 20031201, end: 20040501
  2. LEVOTHYROXINE SODIUM [Concomitant]
  3. PANTOPRAZOLE [Concomitant]
  4. VOLTAREN [Concomitant]
  5. HYDROXYCHLOROQUINE PHOSPHATE [Concomitant]

REACTIONS (4)
  - INJECTION SITE ERYTHEMA [None]
  - INJECTION SITE PRURITUS [None]
  - INJECTION SITE RASH [None]
  - INJECTION SITE WARMTH [None]
